FAERS Safety Report 21357408 (Version 1)
Quarter: 2022Q3

REPORT INFORMATION
  Report Type: Spontaneous
  Country: DE (occurrence: DE)
  Receive Date: 20220921
  Receipt Date: 20220921
  Transmission Date: 20221027
  Serious: Yes (Hospitalization, Other)
  Sender: FDA-Public Use
  Company Number: DE-ADRED-05426-01

PATIENT
  Age: 60 Year
  Sex: Female
  Weight: 67 kg

DRUGS (10)
  1. LEVETIRACETAM [Suspect]
     Active Substance: LEVETIRACETAM
     Indication: Product used for unknown indication
     Dosage: 750 MILLIGRAM,(750 MG, 1-0-1-0, TABLETTEN )
     Route: 048
  2. PERTUZUMAB [Suspect]
     Active Substance: PERTUZUMAB
     Indication: Product used for unknown indication
     Dosage: UNK
     Route: 042
  3. TRASTUZUMAB [Suspect]
     Active Substance: TRASTUZUMAB
     Indication: Product used for unknown indication
     Dosage: UNK
     Route: 042
  4. DOCETAXEL [Concomitant]
     Active Substance: DOCETAXEL
     Indication: Product used for unknown indication
     Dosage: UNK
     Route: 042
  5. IRBESARTAN [Concomitant]
     Active Substance: IRBESARTAN
     Indication: Product used for unknown indication
     Dosage: 300 MILLIGRAM,300 MG, 1-0-0-0, TABLETTEN
     Route: 048
  6. LACOSAMIDE [Concomitant]
     Active Substance: LACOSAMIDE
     Indication: Product used for unknown indication
     Dosage: 150 MILLIGRAM,(150 MG, 1-0-1-0, TABLETTEN)
     Route: 048
  7. AMLODIPINE BESYLATE [Concomitant]
     Active Substance: AMLODIPINE BESYLATE
     Indication: Product used for unknown indication
     Dosage: UNK,(5 MG, 1-0-0.5-0, TABLETTEN  )
     Route: 048
  8. PANTOPRAZOLE SODIUM [Concomitant]
     Active Substance: PANTOPRAZOLE SODIUM
     Indication: Product used for unknown indication
     Dosage: UNK,40 MG, 0.5-0-0.5-0, TABLETTEN
     Route: 048
  9. BISOPROLOL [Concomitant]
     Active Substance: BISOPROLOL
     Indication: Product used for unknown indication
     Dosage: 5 MILLIGRAM,5 MG, 1-0-1-0, TABLETTEN
     Route: 048
  10. LOPERAMIDE HYDROCHLORIDE [Concomitant]
     Active Substance: LOPERAMIDE HYDROCHLORIDE
     Indication: Product used for unknown indication
     Dosage: 2 MILLIGRAM,2 MG, AS NEEDED, CAPSULES
     Route: 048

REACTIONS (2)
  - Erysipelas [Unknown]
  - Pyrexia [Unknown]
